FAERS Safety Report 6043108-X (Version None)
Quarter: 2009Q1

REPORT INFORMATION
  Report Type: 
  Country: None (occurrence: None)
  Receive Date: 20090119
  Receipt Date: 20090107
  Transmission Date: 20090719
  Serious: Yes (Life-Threatening, Hospitalization)
  Sender: FDA-Public Use
  Company Number: PL-PFIZER INC-2006085401

PATIENT

DRUGS (3)
  1. SUNITINIB MALATE [Suspect]
     Dosage: FREQUENCY: QD
     Route: 048
     Dates: start: 20050316
  2. FOLIC ACID [Concomitant]
     Route: 048
     Dates: start: 20060605
  3. ASCOFER [Concomitant]
     Route: 048
     Dates: start: 20060605

REACTIONS (1)
  - UROSEPSIS [None]
